FAERS Safety Report 6786036-4 (Version None)
Quarter: 2010Q2

REPORT INFORMATION
  Report Type: 
  Country: None (occurrence: None)
  Receive Date: 20100623
  Receipt Date: 20100609
  Transmission Date: 20101027
  Serious: Yes (Other)
  Sender: FDA-Public Use
  Company Number: PHHY2010JP36544

PATIENT
  Age: 69 Year
  Sex: Male

DRUGS (2)
  1. TEGRETOL [Suspect]
     Indication: BIPOLAR I DISORDER
     Dosage: UNK, UNK
     Route: 048
  2. XALATAN [Concomitant]
     Dosage: UNK

REACTIONS (2)
  - DIPLOPIA [None]
  - IIIRD NERVE PARALYSIS [None]
